FAERS Safety Report 15998080 (Version 1)
Quarter: 2019Q1

REPORT INFORMATION
  Report Type: Spontaneous
  Country: FR (occurrence: FR)
  Receive Date: 20190223
  Receipt Date: 20190223
  Transmission Date: 20190418
  Serious: Yes (Other)
  Sender: FDA-Public Use
  Company Number: FR-ROCHE-2270264

PATIENT
  Sex: Female

DRUGS (14)
  1. PREDNISONE. [Suspect]
     Active Substance: PREDNISONE
     Indication: CARDIAC DISORDER
  2. PREDNISONE. [Suspect]
     Active Substance: PREDNISONE
     Indication: CARDIAC DISORDER
  3. DIGOXIN. [Suspect]
     Active Substance: DIGOXIN
     Indication: CARDIAC DISORDER
  4. COLCHICINE. [Suspect]
     Active Substance: COLCHICINE
     Indication: CARDIAC DISORDER
     Route: 065
  5. COLCHICINE. [Suspect]
     Active Substance: COLCHICINE
     Indication: SYSTEMIC SCLERODERMA
  6. PREDNISONE. [Suspect]
     Active Substance: PREDNISONE
     Indication: SYSTEMIC SCLERODERMA
     Dosage: WITH A RAPID DECREASE
     Route: 065
     Dates: start: 201408
  7. PREDNISONE. [Suspect]
     Active Substance: PREDNISONE
     Indication: CARDIAC DISORDER
  8. RITUXIMAB. [Suspect]
     Active Substance: RITUXIMAB
     Indication: CARDIAC DISORDER
  9. DIGOXIN. [Suspect]
     Active Substance: DIGOXIN
     Indication: SYSTEMIC SCLERODERMA
     Route: 065
  10. METHOTREXATE. [Suspect]
     Active Substance: METHOTREXATE
     Indication: SYSTEMIC SCLERODERMA
  11. RITUXIMAB. [Suspect]
     Active Substance: RITUXIMAB
     Indication: SYSTEMIC SCLERODERMA
     Route: 065
  12. PREDNISONE. [Suspect]
     Active Substance: PREDNISONE
     Indication: SYSTEMIC SCLERODERMA
     Dosage: MAINTENANCE DOSE
     Route: 065
     Dates: start: 2014
  13. PREDNISONE. [Suspect]
     Active Substance: PREDNISONE
     Indication: SYSTEMIC SCLERODERMA
     Route: 065
     Dates: start: 201412
  14. METHOTREXATE. [Suspect]
     Active Substance: METHOTREXATE
     Indication: CARDIAC DISORDER
     Dosage: STARTED AT THE AGE OF 48 YEARS
     Route: 065

REACTIONS (2)
  - Staphylococcal sepsis [Unknown]
  - Drug ineffective [Unknown]

NARRATIVE: CASE EVENT DATE: 2014
